FAERS Safety Report 6710757-2 (Version None)
Quarter: 2010Q2

REPORT INFORMATION
  Report Type: 
  Country: None (occurrence: None)
  Receive Date: 20100504
  Receipt Date: 20100504
  Transmission Date: 20101027
  Serious: No
  Sender: FDA-Public Use
  Company Number: None

PATIENT
  Age: 6 Month
  Sex: Female
  Weight: 8.1647 kg

DRUGS (3)
  1. MOTRIN [Suspect]
     Indication: CROUP INFECTIOUS
     Dosage: 1.25 ML EVERY 6 HOURS PO
     Route: 048
     Dates: start: 20100428, end: 20100429
  2. MOTRIN [Suspect]
     Indication: PAIN
     Dosage: 1.25 ML EVERY 6 HOURS PO
     Route: 048
     Dates: start: 20100428, end: 20100429
  3. MOTRIN [Suspect]
     Indication: PYREXIA
     Dosage: 1.25 ML EVERY 6 HOURS PO
     Route: 048
     Dates: start: 20100428, end: 20100429

REACTIONS (2)
  - ADMINISTRATION RELATED REACTION [None]
  - VOMITING [None]
